FAERS Safety Report 7782682-X (Version None)
Quarter: 2011Q3

REPORT INFORMATION
  Report Type: 
  Country: None (occurrence: None)
  Receive Date: 20110926
  Receipt Date: 20110914
  Transmission Date: 20111222
  Serious: Yes (Other)
  Sender: FDA-Public Use
  Company Number: JPI-P-017193

PATIENT
  Age: 55 Year
  Sex: Male
  Weight: 105.2345 kg

DRUGS (7)
  1. METHADONE HCL [Concomitant]
  2. XYREM [Suspect]
     Indication: HYPERSOMNIA
     Dosage: ORAL
     Route: 048
     Dates: start: 20100521
  3. LEXAPRO [Concomitant]
  4. RYTHMOL [Concomitant]
  5. LYRICA [Concomitant]
  6. FENTANYL-100 [Concomitant]
  7. ASPIRIN [Concomitant]

REACTIONS (5)
  - CONFUSIONAL STATE [None]
  - SKIN EXFOLIATION [None]
  - SYSTEMIC LUPUS ERYTHEMATOSUS [None]
  - AMNESIA [None]
  - RASH [None]
